FAERS Safety Report 4763419-5 (Version None)
Quarter: 2005Q3

REPORT INFORMATION
  Report Type: 
  Country: None (occurrence: None)
  Receive Date: 20050826
  Receipt Date: 20041229
  Transmission Date: 20060218
  Serious: Yes (Hospitalization, Other)
  Sender: FDA-Public Use
  Company Number: USA-2003-0010576

PATIENT
  Age: 48 Year
  Sex: Male
  Weight: 76.2 kg

DRUGS (23)
  1. OXYCONTIN [Suspect]
     Indication: PAIN
     Dosage: 40 MG, BID, ORAL
     Route: 048
  2. OXYIR [Concomitant]
  3. OXYCODONE HCL [Concomitant]
  4. PROZAC [Concomitant]
  5. AMBIEN [Concomitant]
  6. PREVACID [Concomitant]
  7. SOMA [Concomitant]
  8. SERZONE [Concomitant]
  9. ZANAFLEX [Concomitant]
  10. XANAX [Concomitant]
  11. RESTORIL [Concomitant]
  12. CELEBREX [Concomitant]
  13. EFFEXOR [Concomitant]
  14. SONATA [Concomitant]
  15. NEXIUM [Concomitant]
  16. TOPAMAX [Concomitant]
  17. DARVOCET-N 100 [Concomitant]
  18. MARIJUANA [Concomitant]
  19. DEMEROL [Concomitant]
  20. NITROGLYCERIN [Concomitant]
  21. KEPPRA [Concomitant]
  22. VICODIN [Concomitant]
  23. VIOXX [Concomitant]

REACTIONS (33)
  - ABNORMAL BEHAVIOUR [None]
  - ANGER [None]
  - ANXIETY [None]
  - APHASIA [None]
  - AZOTAEMIA [None]
  - CONDITION AGGRAVATED [None]
  - CONFUSIONAL STATE [None]
  - CONVULSION [None]
  - DEPRESSED LEVEL OF CONSCIOUSNESS [None]
  - DRUG ABUSER [None]
  - DRUG DEPENDENCE [None]
  - DRUG INEFFECTIVE [None]
  - DRUG WITHDRAWAL SYNDROME [None]
  - EMOTIONAL DISTRESS [None]
  - EYE ROLLING [None]
  - FATIGUE [None]
  - HEADACHE [None]
  - HYPOAESTHESIA [None]
  - HYPOVOLAEMIA [None]
  - INCREASED APPETITE [None]
  - INSOMNIA [None]
  - NASOPHARYNGITIS [None]
  - NERVOUSNESS [None]
  - OVERDOSE [None]
  - PAIN [None]
  - PAIN IN EXTREMITY [None]
  - PARAESTHESIA [None]
  - SALIVARY HYPERSECRETION [None]
  - SOMNOLENCE [None]
  - STARING [None]
  - STRESS [None]
  - THINKING ABNORMAL [None]
  - TONIC CLONIC MOVEMENTS [None]
